FAERS Safety Report 4687489-8 (Version None)
Quarter: 2005Q2

REPORT INFORMATION
  Report Type: 
  Country: None (occurrence: None)
  Receive Date: 20050610
  Receipt Date: 20050527
  Transmission Date: 20051028
  Serious: No
  Sender: FDA-Public Use
  Company Number: PHBS2005BR07653

PATIENT
  Age: 4 Year
  Sex: Female
  Weight: 25 kg

DRUGS (1)
  1. TEGRETOL [Suspect]
     Indication: EPILEPSY
     Dosage: 1 ML, Q12H
     Route: 048

REACTIONS (8)
  - ABDOMINAL PAIN UPPER [None]
  - CONVULSION [None]
  - INCORRECT DOSE ADMINISTERED [None]
  - MUSCLE RIGIDITY [None]
  - PARALYSIS [None]
  - SALIVARY HYPERSECRETION [None]
  - THERAPY NON-RESPONDER [None]
  - VOMITING [None]
